FAERS Safety Report 13899655 (Version 1)
Quarter: 2017Q3

REPORT INFORMATION
  Report Type: Spontaneous
  Country: US (occurrence: US)
  Receive Date: 20170823
  Receipt Date: 20170823
  Transmission Date: 20171127
  Serious: Yes (Hospitalization, Other)
  Sender: FDA-Public Use
  Company Number: US-ABBVIE-17P-163-2073442-00

PATIENT
  Age: 64 Year
  Sex: Female
  Weight: 83.9 kg

DRUGS (9)
  1. LANTUS [Concomitant]
     Active Substance: INSULIN GLARGINE
     Indication: PRODUCT USED FOR UNKNOWN INDICATION
     Route: 065
     Dates: start: 2013
  2. PLAVIX [Concomitant]
     Active Substance: CLOPIDOGREL BISULFATE
     Indication: PRODUCT USED FOR UNKNOWN INDICATION
     Route: 065
  3. LOSARTAN. [Concomitant]
     Active Substance: LOSARTAN
     Indication: PRODUCT USED FOR UNKNOWN INDICATION
     Route: 065
  4. SYNTHROID [Suspect]
     Active Substance: LEVOTHYROXINE SODIUM
     Indication: PRODUCT USED FOR UNKNOWN INDICATION
     Route: 065
  5. NOVOLOG [Suspect]
     Active Substance: INSULIN ASPART
     Dosage: 100 U/ML FORM STRENGTH
     Route: 058
     Dates: start: 201706
  6. TOPROL XL [Concomitant]
     Active Substance: METOPROLOL SUCCINATE
     Indication: PRODUCT USED FOR UNKNOWN INDICATION
     Route: 065
  7. NOVOLOG [Suspect]
     Active Substance: INSULIN ASPART
     Indication: TYPE 2 DIABETES MELLITUS
     Dosage: 100 U/ML FORM STRENGTH
     Route: 058
     Dates: start: 2013, end: 201706
  8. ASPIRIN. [Concomitant]
     Active Substance: ASPIRIN
     Indication: PRODUCT USED FOR UNKNOWN INDICATION
     Route: 065
  9. VITAMIN D3 [Concomitant]
     Active Substance: CHOLECALCIFEROL
     Indication: PRODUCT USED FOR UNKNOWN INDICATION
     Route: 065

REACTIONS (8)
  - Hand fracture [Recovering/Resolving]
  - Wrist fracture [Recovered/Resolved]
  - Laceration [Recovered/Resolved]
  - Carpal tunnel syndrome [Recovering/Resolving]
  - Foreign body [Recovered/Resolved]
  - Blood glucose increased [Recovering/Resolving]
  - Road traffic accident [Recovered/Resolved]
  - Hyperglycaemic unconsciousness [Recovered/Resolved]

NARRATIVE: CASE EVENT DATE: 20160905
